FAERS Safety Report 24959668 (Version 1)
Quarter: 2025Q1

REPORT INFORMATION
  Report Type: Spontaneous
  Country: US (occurrence: None)
  Receive Date: 20250211
  Receipt Date: 20250211
  Transmission Date: 20250409
  Serious: Yes (Hospitalization, Congenital Anomaly)
  Sender: FDA-CTU
  Company Number: None

PATIENT
  Age: 0 Year
  Sex: Female
  Weight: 4.05 kg

DRUGS (6)
  1. QUETIAPINE [Suspect]
     Active Substance: QUETIAPINE
     Indication: Bipolar disorder
     Dates: start: 20201128
  2. Maternal medication: gabapentin [Concomitant]
  3. TRAZODONE [Concomitant]
     Active Substance: TRAZODONE HYDROCHLORIDE
  4. Maternal medication: alprazoiam [Concomitant]
  5. Maternal medication: ondansetron [Concomitant]
  6. Maternal medication: levonorgestrel [Concomitant]

REACTIONS (8)
  - Maternal drugs affecting foetus [None]
  - Respiratory failure [None]
  - Tachypnoea [None]
  - Hypoxia [None]
  - Hypoglycaemia [None]
  - Hyperbilirubinaemia [None]
  - Polydactyly [None]
  - Caesarean section [None]

NARRATIVE: CASE EVENT DATE: 20210912
